FAERS Safety Report 5049564-8 (Version None)
Quarter: 2006Q2

REPORT INFORMATION
  Report Type: 
  Country: None (occurrence: None)
  Receive Date: 20060613
  Receipt Date: 20060418
  Transmission Date: 20061013
  Serious: Yes (Hospitalization)
  Sender: FDA-Public Use
  Company Number: 2006-00898

PATIENT
  Age: 89 Year
  Sex: Male
  Weight: 56.7 kg

DRUGS (1)
  1. VELCADE [Suspect]
     Indication: NON-HODGKIN'S LYMPHOMA
     Dates: start: 20060407, end: 20060410

REACTIONS (2)
  - DYSPHAGIA [None]
  - PAIN [None]
